FAERS Safety Report 7487404-8 (Version None)
Quarter: 2011Q2

REPORT INFORMATION
  Report Type: 
  Country: None (occurrence: None)
  Receive Date: 20110518
  Receipt Date: 20110504
  Transmission Date: 20111010
  Serious: Yes (Other)
  Sender: FDA-Public Use
  Company Number: US-ELI_LILLY_AND_COMPANY-US201101001325

PATIENT
  Sex: Female

DRUGS (5)
  1. FORTEO [Suspect]
     Dosage: 20 UG, QD
     Route: 065
  2. FORTEO [Suspect]
     Dosage: 20 UG, DAILY (1/D)
     Route: 065
  3. FORTEO [Suspect]
     Indication: OSTEOPOROSIS
     Dosage: 20 UG, DAILY (1/D)
     Route: 065
     Dates: start: 20100929
  4. FORTEO [Suspect]
     Dosage: 20 UG, QD
  5. SYNTHROID [Concomitant]
     Dosage: UNK, UNKNOWN

REACTIONS (12)
  - DIZZINESS [None]
  - HEAD INJURY [None]
  - CARTILAGE INJURY [None]
  - MEMORY IMPAIRMENT [None]
  - HAEMORRHAGE [None]
  - LOSS OF CONSCIOUSNESS [None]
  - ARTHRITIS [None]
  - MUSCULOSKELETAL CHEST PAIN [None]
  - CONCUSSION [None]
  - LARYNGITIS [None]
  - FALL [None]
  - SCAB [None]
